FAERS Safety Report 16908335 (Version 1)
Quarter: 2019Q4

REPORT INFORMATION
  Report Type: Spontaneous
  Country: ES (occurrence: ES)
  Receive Date: 20191011
  Receipt Date: 20191011
  Transmission Date: 20200122
  Serious: Yes (Life-Threatening, Other)
  Sender: FDA-Public Use
  Company Number: ES-DENTSPLY-2019SCDP000538

PATIENT
  Age: 77 Year
  Sex: Female

DRUGS (2)
  1. MEPIVACAINE HCL [Suspect]
     Active Substance: MEPIVACAINE HYDROCHLORIDE
     Indication: WOUND
     Dosage: UNK
  2. CHLORHEXIDINE [Suspect]
     Active Substance: CHLORHEXIDINE
     Indication: WOUND
     Dosage: UNK
     Route: 061

REACTIONS (7)
  - Hypotension [Unknown]
  - Erythema [Unknown]
  - Hypersensitivity [Unknown]
  - Dysphonia [Unknown]
  - Cough [Unknown]
  - Pruritus [Unknown]
  - Anaphylactic shock [Unknown]
